FAERS Safety Report 21204394 (Version 5)
Quarter: 2022Q4

REPORT INFORMATION
  Report Type: Spontaneous
  Country: CA (occurrence: CA)
  Receive Date: 20220812
  Receipt Date: 20221214
  Transmission Date: 20230112
  Serious: Yes (Other)
  Sender: FDA-Public Use
  Company Number: CA-CELLTRION INC.-2021CA008503

PATIENT

DRUGS (17)
  1. INFLECTRA [Suspect]
     Active Substance: INFLIXIMAB-DYYB
     Indication: Crohn^s disease
     Dosage: 650 MG AT 0,2 AND 6 WEEKS, THEN Q 8 WEEKS
     Route: 042
     Dates: start: 20210408, end: 20211103
  2. INFLECTRA [Suspect]
     Active Substance: INFLIXIMAB-DYYB
     Dosage: 650 MG AT 0,2 AND 6 WEEKS, THEN Q 8 WEEKS
     Route: 042
     Dates: start: 20210422
  3. INFLECTRA [Suspect]
     Active Substance: INFLIXIMAB-DYYB
     Dosage: 650 MG AT 0,2 AND 6 WEEKS, THEN Q 8 WEEKS
     Route: 042
     Dates: start: 20210520
  4. INFLECTRA [Suspect]
     Active Substance: INFLIXIMAB-DYYB
     Dosage: 650 MG AT 0,2 AND 6 WEEKS, THEN Q 8 WEEKS
     Route: 042
     Dates: start: 20210715
  5. INFLECTRA [Suspect]
     Active Substance: INFLIXIMAB-DYYB
     Dosage: 650 MG AT 0,2 AND 6 WEEKS, THEN Q 8 WEEKS
     Route: 042
     Dates: start: 20210715
  6. INFLECTRA [Suspect]
     Active Substance: INFLIXIMAB-DYYB
     Dosage: 650 MG AT 0,2 AND 6 WEEKS, THEN Q 8 WEEKS
     Route: 042
     Dates: start: 20210908
  7. INFLECTRA [Suspect]
     Active Substance: INFLIXIMAB-DYYB
     Dosage: 650 MG AT 0,2 AND 6 WEEKS, THEN Q 8 WEEKS
     Route: 042
     Dates: start: 20211103
  8. INFLECTRA [Suspect]
     Active Substance: INFLIXIMAB-DYYB
     Dosage: 5 MG/KG , EVERY 6 WEEK
     Route: 042
     Dates: start: 20220105
  9. INFLECTRA [Suspect]
     Active Substance: INFLIXIMAB-DYYB
     Dosage: 5 MG/KG , EVERY 6 WEEK
     Route: 042
     Dates: start: 20220216
  10. INFLECTRA [Suspect]
     Active Substance: INFLIXIMAB-DYYB
     Dosage: 5 MG/KG , EVERY 6 WEEK
     Route: 042
     Dates: start: 20220330
  11. INFLECTRA [Suspect]
     Active Substance: INFLIXIMAB-DYYB
     Dosage: 5 MG/KG , EVERY 6 WEEK
     Route: 042
     Dates: start: 20220622
  12. INFLECTRA [Suspect]
     Active Substance: INFLIXIMAB-DYYB
     Dosage: 5 MG/KG , EVERY 6 WEEK
     Route: 042
     Dates: start: 20220802
  13. INFLECTRA [Suspect]
     Active Substance: INFLIXIMAB-DYYB
     Dosage: 5 MG/KG,EVERY 6 WEEK
     Route: 042
     Dates: start: 20220914
  14. INFLECTRA [Suspect]
     Active Substance: INFLIXIMAB-DYYB
     Dosage: 5 MG/KG , EVERY 6 WEEK
     Route: 042
     Dates: start: 20221026
  15. INFLECTRA [Suspect]
     Active Substance: INFLIXIMAB-DYYB
     Dosage: 5 MG/KG , EVERY 6 WEEK
     Route: 042
     Dates: start: 20221205
  16. CELEBREX [Concomitant]
     Active Substance: CELECOXIB
     Dosage: 1 DF, DOSAGE INFO: UNKNOWN
     Route: 065
  17. METHOTREXATE [Concomitant]
     Active Substance: METHOTREXATE
     Indication: Rheumatoid arthritis
     Dosage: 1 DF, 1 PILL DAILY WITH 6 PILLS ON THE 7TH DAY EACH WEEK
     Route: 048
     Dates: start: 2021

REACTIONS (9)
  - Condition aggravated [Not Recovered/Not Resolved]
  - Off label use [Unknown]
  - Inappropriate schedule of product administration [Unknown]
  - Arthralgia [Unknown]
  - Weight decreased [Unknown]
  - Abdominal pain [Unknown]
  - Back pain [Unknown]
  - Pain [Unknown]
  - Groin pain [Unknown]

NARRATIVE: CASE EVENT DATE: 20210520
